FAERS Safety Report 7360414-7 (Version None)
Quarter: 2011Q1

REPORT INFORMATION
  Report Type: 
  Country: None (occurrence: None)
  Receive Date: 20110318
  Receipt Date: 20100928
  Transmission Date: 20110831
  Serious: Yes (Other)
  Sender: FDA-Public Use
  Company Number: US-BAYER-200943311NA

PATIENT
  Sex: Female
  Weight: 79 kg

DRUGS (7)
  1. YAZ [Suspect]
     Dosage: 1 DF, QD
     Dates: start: 20071001, end: 20090101
  2. TRAMADOL HCL [Concomitant]
  3. ZANTAC [Concomitant]
  4. LOW-OGESTREL [Concomitant]
  5. HYDROXYZINE PAMOATE [Concomitant]
  6. ELMIRON [Concomitant]
  7. HYOSCYAMINE [Concomitant]

REACTIONS (7)
  - VOMITING [None]
  - GALLBLADDER DISORDER [None]
  - NAUSEA [None]
  - ABDOMINAL PAIN UPPER [None]
  - CHOLECYSTITIS CHRONIC [None]
  - CHOLELITHIASIS [None]
  - GASTROOESOPHAGEAL REFLUX DISEASE [None]
